FAERS Safety Report 9288666 (Version 1)
Quarter: 2013Q2

REPORT INFORMATION
  Report Type: Spontaneous
  Country: US (occurrence: None)
  Receive Date: 20130513
  Receipt Date: 20130513
  Transmission Date: 20140414
  Serious: Yes (Life-Threatening, Hospitalization)
  Sender: FDA-Public Use
  Company Number: None

PATIENT
  Age: 60 Year
  Sex: Male
  Weight: 83.6 kg

DRUGS (1)
  1. MORPHINE [Suspect]
     Indication: PAIN
     Route: 048
     Dates: start: 20130108, end: 20130418

REACTIONS (6)
  - Sedation [None]
  - Hypotension [None]
  - Somnolence [None]
  - Asthenia [None]
  - Heart rate decreased [None]
  - Hypoxia [None]
